FAERS Safety Report 7991723-6 (Version None)
Quarter: 2011Q4

REPORT INFORMATION
  Report Type: 
  Country: None (occurrence: None)
  Receive Date: 20111219
  Receipt Date: 20111214
  Transmission Date: 20120403
  Serious: Yes (Other)
  Sender: FDA-Public Use
  Company Number: BR-ABBOTT-11P-020-0802833-00

PATIENT
  Sex: Male
  Weight: 54 kg

DRUGS (4)
  1. CREON [Suspect]
     Indication: PANCREATITIS
     Dosage: DAILY DOSE: 11 DOSAGE FORM, UNIT DOSE: 25.000
     Route: 048
     Dates: start: 20070101, end: 20110314
  2. ALPRAZOLAM [Concomitant]
     Indication: DEPRESSION
     Dosage: DAILY DOSE: 1 DOSAGE FORM
     Route: 048
  3. INSULIN [Concomitant]
     Indication: DIABETES MELLITUS
     Dosage: DAILY DOSE: 1 DOSAGE FORM (1 UNIT)
     Route: 065
     Dates: start: 20070101
  4. METFORMIN HCL [Concomitant]
     Indication: DIABETES MELLITUS
     Dosage: DAILY DOSE: 3 DOSAGE FORM
     Route: 048
     Dates: start: 20070101

REACTIONS (10)
  - MALNUTRITION [None]
  - ASCITES [None]
  - PAIN [None]
  - WEIGHT FLUCTUATION [None]
  - WAIST CIRCUMFERENCE INCREASED [None]
  - BACK PAIN [None]
  - DECREASED APPETITE [None]
  - ABDOMINAL PAIN [None]
  - WEIGHT DECREASED [None]
  - VARICOSE VEIN [None]
